FAERS Safety Report 9034358 (Version 1)
Quarter: 2013Q1

REPORT INFORMATION
  Report Type: Spontaneous
  Country: CA (occurrence: CA)
  Receive Date: 20130128
  Receipt Date: 20130128
  Transmission Date: 20140127
  Serious: Yes (Hospitalization)
  Sender: FDA-Public Use
  Company Number: CA-AMGEN-CANSP2012077543

PATIENT
  Age: 49 Year
  Sex: Female

DRUGS (6)
  1. NEULASTA [Suspect]
     Indication: NEOPLASM MALIGNANT
     Dosage: UNK
     Dates: end: 20121201
  2. NEUPOGEN [Suspect]
     Dosage: UNK
  3. CHEMOTHERAPEUTICS [Concomitant]
     Dosage: UNK
  4. BENADRYL                           /00000402/ [Concomitant]
     Dosage: UNK
  5. PEPCID                             /00706001/ [Concomitant]
     Dosage: UNK
  6. DEXAMETHASONE [Concomitant]
     Dosage: UNK

REACTIONS (2)
  - Chest pain [Recovered/Resolved]
  - White blood cell count abnormal [Unknown]
